FAERS Safety Report 23518746 (Version 1)
Quarter: 2024Q1

REPORT INFORMATION
  Report Type: Spontaneous
  Country: US (occurrence: US)
  Receive Date: 20240213
  Receipt Date: 20240213
  Transmission Date: 20240409
  Serious: No
  Sender: FDA-Public Use
  Company Number: US-JNJFOC-20240185297

PATIENT

DRUGS (4)
  1. TYLENOL [Suspect]
     Active Substance: ACETAMINOPHEN
     Indication: Pain
     Route: 048
  2. LIDOCAINE [Concomitant]
     Active Substance: LIDOCAINE
     Indication: Product used for unknown indication
     Route: 065
  3. MENTHOL [Concomitant]
     Active Substance: MENTHOL
     Indication: Product used for unknown indication
     Route: 065
  4. DICLOFENAC [Concomitant]
     Active Substance: DICLOFENAC
     Indication: Pain
     Route: 061

REACTIONS (1)
  - Therapeutic product effect incomplete [Unknown]
